FAERS Safety Report 19577981 (Version 1)
Quarter: 2021Q3

REPORT INFORMATION
  Report Type: Spontaneous
  Country: US (occurrence: US)
  Receive Date: 20210719
  Receipt Date: 20210719
  Transmission Date: 20211014
  Serious: Yes (Other)
  Sender: FDA-Public Use
  Company Number: NVSC2021US153967

PATIENT
  Age: 91 Year
  Sex: Male
  Weight: 79.38 kg

DRUGS (1)
  1. ENTRESTO [Suspect]
     Active Substance: SACUBITRIL\VALSARTAN
     Indication: CARDIAC FAILURE
     Dosage: 1 DF (24.26 MG)
     Route: 048

REACTIONS (3)
  - Diarrhoea [Recovering/Resolving]
  - Pulmonary oedema [Recovering/Resolving]
  - Peripheral swelling [Recovering/Resolving]
